FAERS Safety Report 17213374 (Version 7)
Quarter: 2020Q2

REPORT INFORMATION
  Report Type: Spontaneous
  Country: DE (occurrence: DE)
  Receive Date: 20191230
  Receipt Date: 20200505
  Transmission Date: 20200713
  Serious: Yes (Death, Life-Threatening, Hospitalization, Other)
  Sender: FDA-Public Use
  Company Number: DE-PFIZER INC-2019557177

PATIENT
  Sex: Female
  Weight: 52 kg

DRUGS (31)
  1. ELIQUIS [Suspect]
     Active Substance: APIXABAN
     Indication: SYSTEMIC LUPUS ERYTHEMATOSUS
     Dosage: 2.5 MILLIGRAM
     Route: 065
  2. BENLYSTA [Suspect]
     Active Substance: BELIMUMAB
     Indication: SYSTEMIC LUPUS ERYTHEMATOSUS
     Dosage: 10 MILLIGRAM/KILOGRAM, QWK
     Route: 058
     Dates: start: 201711, end: 201812
  3. AZATHIOPRINE. [Suspect]
     Active Substance: AZATHIOPRINE
     Indication: SYSTEMIC LUPUS ERYTHEMATOSUS
     Dosage: 50 MILLIGRAM
     Route: 065
     Dates: start: 201906, end: 201907
  4. SEVREDOL [Suspect]
     Active Substance: MORPHINE
     Dosage: 20 TO 55XDAILY
     Route: 065
  5. FLUVASTATIN [Suspect]
     Active Substance: FLUVASTATIN SODIUM
     Dosage: UNK
     Route: 065
  6. BAYOTENSIN [Concomitant]
     Active Substance: NITRENDIPINE
     Dosage: UNK
     Route: 065
  7. ISDN [Concomitant]
     Dosage: UNK, 2X/DAY
     Route: 065
  8. EZETROL [Concomitant]
     Active Substance: EZETIMIBE
     Dosage: UNK, 1X/DAY
     Route: 065
  9. BENLYSTA [Suspect]
     Active Substance: BELIMUMAB
     Dosage: 200 MILLIGRAM/KILOGRAM, QWK
     Route: 058
     Dates: start: 201806, end: 201807
  10. AZATHIOPRINE. [Suspect]
     Active Substance: AZATHIOPRINE
     Indication: WHITE BLOOD CELL COUNT DECREASED
     Dosage: UNK
     Route: 065
     Dates: start: 1997, end: 2008
  11. MORPHINE [Concomitant]
     Active Substance: MORPHINE
     Dosage: 30 TWICE DAILY
     Route: 065
  12. ACICLOVIR [Suspect]
     Active Substance: ACYCLOVIR
     Indication: SYSTEMIC LUPUS ERYTHEMATOSUS
     Dosage: 400 MG, 3X/DAY
     Route: 065
  13. BENLYSTA [Suspect]
     Active Substance: BELIMUMAB
     Indication: WHITE BLOOD CELL COUNT DECREASED
     Dosage: 200 MG/KG, WEEKLY
     Route: 058
     Dates: start: 201708, end: 201904
  14. LEVOTHYROXINE SODIUM. [Suspect]
     Active Substance: LEVOTHYROXINE SODIUM
     Indication: SYSTEMIC LUPUS ERYTHEMATOSUS
     Dosage: UNK
     Route: 065
  15. DEKRISTOL [Concomitant]
     Active Substance: CHOLECALCIFEROL
     Dosage: UNK, WEEKLY
     Route: 065
  16. DULOXETINE. [Concomitant]
     Active Substance: DULOXETINE
     Dosage: 30 ONCE DAILY
     Route: 065
  17. DETRUSITOL [Suspect]
     Active Substance: TOLTERODINE TARTRATE
     Indication: SYSTEMIC LUPUS ERYTHEMATOSUS
     Dosage: UNK
     Route: 065
  18. PREDNISOLONE. [Suspect]
     Active Substance: PREDNISOLONE
     Indication: SYSTEMIC LUPUS ERYTHEMATOSUS
     Dosage: 5 MG, 1X/DAY
     Route: 065
     Dates: start: 1988
  19. VALSARTAN. [Suspect]
     Active Substance: VALSARTAN
     Indication: SYSTEMIC LUPUS ERYTHEMATOSUS
     Dosage: 160 TWICE DAILY
     Route: 065
  20. AZATHIOPRINE. [Suspect]
     Active Substance: AZATHIOPRINE
     Indication: LYMPHOPENIA
     Dosage: 50 MILLIGRAM
     Route: 065
     Dates: start: 20100419, end: 201904
  21. MOLSIDOMIN [Suspect]
     Active Substance: MOLSIDOMINE
     Indication: SYSTEMIC LUPUS ERYTHEMATOSUS
     Dosage: UNK, 1X/DAY
     Route: 065
  22. LAXATAN M [Concomitant]
     Dosage: UNK
     Route: 065
  23. FLUVASTATIN [Suspect]
     Active Substance: FLUVASTATIN SODIUM
     Indication: SYSTEMIC LUPUS ERYTHEMATOSUS
     Dosage: UNK, 1X/DAY
     Route: 065
  24. PENTACARINAT [Suspect]
     Active Substance: PENTAMIDINE ISETHIONATE
     Indication: SYSTEMIC LUPUS ERYTHEMATOSUS
     Dosage: UNK
     Route: 055
     Dates: start: 201904
  25. MOLSIDOMIN [Suspect]
     Active Substance: MOLSIDOMINE
     Dosage: UNK
     Route: 065
  26. SEVREDOL [Suspect]
     Active Substance: MORPHINE
     Indication: SYSTEMIC LUPUS ERYTHEMATOSUS
     Dosage: 20 TO 55XDAILY
     Route: 065
  27. MCP [Concomitant]
     Active Substance: METOCLOPRAMIDE HYDROCHLORIDE
     Dosage: UNK, 3X/DAY
     Route: 065
  28. SAB SIMPLEX [DIMETICONE] [Concomitant]
     Dosage: 30GTT TO 3X/D
     Route: 065
  29. ANORO [Concomitant]
     Active Substance: UMECLIDINIUM BROMIDE\VILANTEROL TRIFENATATE
     Dosage: UNK
     Route: 055
  30. L-THYROX [Concomitant]
     Active Substance: LEVOTHYROXINE SODIUM
     Dosage: UNK, 1X/DAY
     Route: 065
  31. QUENSYL [Concomitant]
     Active Substance: HYDROXYCHLOROQUINE
     Dosage: 200 MG, 1X/DAY
     Route: 065

REACTIONS (28)
  - Coombs positive haemolytic anaemia [Unknown]
  - Depression [Unknown]
  - Antinuclear antibody negative [Unknown]
  - Gastrooesophageal reflux disease [Unknown]
  - Thrombocytopenia [Unknown]
  - Complex regional pain syndrome [Unknown]
  - Pneumocystis jirovecii pneumonia [Fatal]
  - Urinary tract infection [Unknown]
  - Hyperlipidaemia [Unknown]
  - Systemic lupus erythematosus [Unknown]
  - Antiphospholipid syndrome [Unknown]
  - Skin disorder [Unknown]
  - Fall [Unknown]
  - Pancreatitis acute [Unknown]
  - Peritonitis [Fatal]
  - Herpes simplex reactivation [Unknown]
  - Pleuritic pain [Unknown]
  - Hypertension [Unknown]
  - Sepsis [Fatal]
  - Hypothyroidism [Unknown]
  - Leukopenia [Unknown]
  - Osteonecrosis [Unknown]
  - Anxiety disorder [Unknown]
  - Gastritis haemorrhagic [Unknown]
  - Erysipelas [Unknown]
  - Intentional product use issue [Unknown]
  - Lymphopenia [Fatal]
  - Colitis ulcerative [Unknown]

NARRATIVE: CASE EVENT DATE: 1990
